FAERS Safety Report 25164955 (Version 2)
Quarter: 2025Q3

REPORT INFORMATION
  Report Type: Spontaneous
  Country: EU (occurrence: EU)
  Receive Date: 20250406
  Receipt Date: 20250809
  Transmission Date: 20251020
  Serious: Yes (Other)
  Sender: ALEXION PHARMACEUTICALS
  Company Number: EU-AstraZeneca-CH-00838657AM

PATIENT
  Sex: Male

DRUGS (1)
  1. DAPAGLIFLOZIN [Suspect]
     Active Substance: DAPAGLIFLOZIN
     Route: 065

REACTIONS (6)
  - Coma [Unknown]
  - Cardiac asthma [Unknown]
  - Renal disorder [Not Recovered/Not Resolved]
  - Blood urine present [Recovered/Resolved]
  - Thirst [Recovered/Resolved]
  - Weight increased [Recovered/Resolved]
